FAERS Safety Report 14800064 (Version 2)
Quarter: 2018Q2

REPORT INFORMATION
  Report Type: Spontaneous
  Country: US (occurrence: US)
  Receive Date: 20180424
  Receipt Date: 20180511
  Transmission Date: 20180711
  Serious: Yes (Other)
  Sender: FDA-Public Use
  Company Number: US-JNJFOC-20180420505

PATIENT
  Age: 71 Year
  Sex: Female
  Weight: 100.25 kg

DRUGS (13)
  1. ATORVASTATIN [Concomitant]
     Active Substance: ATORVASTATIN
     Indication: BLOOD PRESSURE ABNORMAL
     Route: 048
     Dates: start: 201709
  2. COD LIVER OIL [Concomitant]
     Active Substance: COD LIVER OIL
     Indication: PALPITATIONS
     Route: 048
  3. PINDOLOL. [Concomitant]
     Active Substance: PINDOLOL
     Indication: HYPERTENSION
     Dosage: IN THE MORNING, TOTAL DOSE: 30 MG
     Route: 048
  4. VITAMIN D3 [Concomitant]
     Active Substance: CHOLECALCIFEROL
     Indication: VITAMIN SUPPLEMENTATION
     Route: 048
  5. XARELTO [Suspect]
     Active Substance: RIVAROXABAN
     Indication: CEREBROVASCULAR ACCIDENT
     Dosage: STARTED ON ^FRIDAY AFTER LABOR DAY^.
     Route: 048
     Dates: start: 20170908
  6. VITAMIN B6 [Concomitant]
     Active Substance: PYRIDOXINE HYDROCHLORIDE
     Indication: VITAMIN SUPPLEMENTATION
     Route: 048
  7. PINDOLOL. [Concomitant]
     Active Substance: PINDOLOL
     Indication: HYPERTENSION
     Dosage: IN THE EVENING; TOTAL DOSE: 20 MG
     Route: 048
  8. VIT-C [Concomitant]
     Indication: VITAMIN SUPPLEMENTATION
     Route: 048
  9. LOSARTAN. [Concomitant]
     Active Substance: LOSARTAN
     Indication: BLOOD PRESSURE ABNORMAL
     Route: 048
  10. FOLIC ACID. [Concomitant]
     Active Substance: FOLIC ACID
     Route: 065
  11. XARELTO [Suspect]
     Active Substance: RIVAROXABAN
     Indication: THROMBOSIS
     Dosage: STARTED ON ^FRIDAY AFTER LABOR DAY^.
     Route: 048
     Dates: start: 20170908
  12. CELEBREX [Concomitant]
     Active Substance: CELECOXIB
     Indication: ARTHRITIS
     Dosage: IN EVERY OTHER DAY
     Route: 048
  13. VITAMIN B12 [Concomitant]
     Active Substance: CYANOCOBALAMIN
     Route: 065

REACTIONS (3)
  - Dyspnoea [Not Recovered/Not Resolved]
  - Cardiac flutter [Unknown]
  - Weight increased [Not Recovered/Not Resolved]

NARRATIVE: CASE EVENT DATE: 201709
